FAERS Safety Report 9662762 (Version 2)
Quarter: 2013Q4

REPORT INFORMATION
  Report Type: Spontaneous
  Country: US (occurrence: US)
  Receive Date: 20131031
  Receipt Date: 20131031
  Transmission Date: 20140711
  Serious: No
  Sender: FDA-Public Use
  Company Number: US-PURDUE-USA-2010-0049811

PATIENT
  Sex: Male

DRUGS (5)
  1. OXYCONTIN (NDA 22-272) [Suspect]
     Indication: BACK PAIN
     Dosage: 80 MG, BID
     Dates: start: 20100915
  2. OXYCONTIN (NDA 22-272) [Suspect]
     Indication: ARTHRALGIA
     Dosage: 60 MG, BID
  3. OXYCONTIN (NDA 22-272) [Suspect]
     Dosage: 20 MG, BID
  4. ENDOCET [Concomitant]
     Indication: BREAKTHROUGH PAIN
  5. VALIUM                             /00017001/ [Concomitant]
     Indication: PRODUCT USED FOR UNKNOWN INDICATION

REACTIONS (4)
  - Gastrooesophageal reflux disease [Unknown]
  - Therapeutic response delayed [Unknown]
  - Drug effect decreased [Unknown]
  - Product physical issue [Unknown]
